FAERS Safety Report 4764679-7 (Version None)
Quarter: 2005Q3

REPORT INFORMATION
  Report Type: 
  Country: None (occurrence: None)
  Receive Date: 20050909
  Receipt Date: 20050210
  Transmission Date: 20060218
  Serious: Yes (Hospitalization, Disabling)
  Sender: FDA-Public Use
  Company Number: US-MERCK-0502USA01605

PATIENT
  Age: 79 Year
  Sex: Female
  Weight: 77 kg

DRUGS (12)
  1. VIOXX [Suspect]
     Indication: ARTHRITIS
     Route: 048
     Dates: start: 20000414, end: 20020830
  2. VIOXX [Suspect]
     Route: 048
     Dates: start: 20000414, end: 20020830
  3. NORVASC [Concomitant]
     Indication: HYPERTENSION
     Route: 065
     Dates: start: 20030601, end: 20041201
  4. ZOCOR [Concomitant]
     Indication: HYPERLIPIDAEMIA
     Route: 048
     Dates: start: 19961210
  5. PRINIVIL [Concomitant]
     Route: 048
     Dates: start: 20001205
  6. LIPITOR [Concomitant]
     Indication: HYPERLIPIDAEMIA
     Route: 065
     Dates: start: 20030507, end: 20040330
  7. RELAFEN [Concomitant]
     Route: 065
     Dates: start: 20000901
  8. TYLENOL [Concomitant]
     Indication: PAIN
     Route: 065
     Dates: start: 19800101
  9. VASOTEC RPD [Concomitant]
     Indication: HYPERTENSION
     Route: 048
     Dates: start: 19950401
  10. ASPIRIN [Concomitant]
     Indication: PROPHYLAXIS
     Route: 065
  11. PLAVIX [Concomitant]
     Route: 065
  12. ATENOLOL [Concomitant]
     Indication: HYPERTENSION
     Route: 065

REACTIONS (14)
  - ADVERSE EVENT [None]
  - ARTERIOSCLEROSIS [None]
  - BURSITIS [None]
  - CARDIAC DISORDER [None]
  - CARDIOVASCULAR DISORDER [None]
  - CEREBROVASCULAR ACCIDENT [None]
  - CHRONIC SINUSITIS [None]
  - DEPRESSION [None]
  - GOITRE [None]
  - HYPERTENSION [None]
  - MULTI-ORGAN DISORDER [None]
  - PAIN [None]
  - SYNCOPE [None]
  - VISUAL DISTURBANCE [None]
